FAERS Safety Report 7018256-8 (Version None)
Quarter: 2010Q3

REPORT INFORMATION
  Report Type: 
  Country: None (occurrence: None)
  Receive Date: 20100927
  Receipt Date: 20100927
  Transmission Date: 20110219
  Serious: Yes (Hospitalization)
  Sender: FDA-Public Use
  Company Number: None

PATIENT
  Age: 63 Year
  Sex: Female

DRUGS (1)
  1. ARIPIPRAZOLE [Suspect]
     Indication: DEPRESSION

REACTIONS (4)
  - FALL [None]
  - MYOCARDIAL INFARCTION [None]
  - PARKINSONISM [None]
  - RHABDOMYOLYSIS [None]
